FAERS Safety Report 20676971 (Version 8)
Quarter: 2022Q2

REPORT INFORMATION
  Report Type: Report from Study
  Country: CA (occurrence: CA)
  Receive Date: 20220406
  Receipt Date: 20220509
  Transmission Date: 20220721
  Serious: Yes (Other)
  Sender: FDA-Public Use
  Company Number: CA-JNJFOC-20220347304

PATIENT
  Age: 34 Year
  Sex: Female
  Weight: 61 kg

DRUGS (4)
  1. REMICADE [Suspect]
     Active Substance: INFLIXIMAB
     Indication: Colitis ulcerative
     Route: 042
     Dates: start: 20210606
  2. REMICADE [Suspect]
     Active Substance: INFLIXIMAB
     Dosage: REINDUCTION ORDERED AT 10 MG/KG (VIAL ROUNDED UP TO 700 MG) WEEK 0, 2,6, THEN EVERY 4 WEEKS
     Route: 042
  3. REMICADE [Suspect]
     Active Substance: INFLIXIMAB
     Dosage: ON 18-APR-2022, RELOADING REVISED TO 5 MG/KG (400 MG VIAL ROUNDED UP) WEEK 0, 2, 6 THEN EVERY 4 WEEK
     Route: 042
  4. REMICADE [Suspect]
     Active Substance: INFLIXIMAB
     Dosage: WEEK 2, 6 THEN EVERY 4 WEEK ORDERS INCREASED TO 700 MG(10MG/KG) FOLLOWING RELOADING DOSE WEEK 0 AT 5
     Route: 042

REACTIONS (4)
  - Colitis ulcerative [Unknown]
  - SARS-CoV-2 test positive [Unknown]
  - Drug specific antibody present [Unknown]
  - Drug level below therapeutic [Unknown]

NARRATIVE: CASE EVENT DATE: 20220318
